FAERS Safety Report 19812671 (Version 2)
Quarter: 2022Q3

REPORT INFORMATION
  Report Type: Spontaneous
  Country: US (occurrence: US)
  Receive Date: 20210909
  Receipt Date: 20220815
  Transmission Date: 20221026
  Serious: Yes (Other)
  Sender: FDA-Public Use
  Company Number: US-MLMSERVICE-20210820-3063126-1

PATIENT
  Age: 44 Year
  Sex: Male

DRUGS (31)
  1. DEXAMETHASONE [Suspect]
     Active Substance: DEXAMETHASONE
     Indication: Angiocentric lymphoma
     Dosage: ON DAYS 2 TO 4 FOR 1 CYCLE OF A 28-DAY CYCLE
     Route: 065
     Dates: start: 20200120, end: 20200122
  2. DEXAMETHASONE [Suspect]
     Active Substance: DEXAMETHASONE
     Dosage: SECOND CYCLE
     Route: 065
     Dates: start: 20200217, end: 20200219
  3. DEXAMETHASONE [Suspect]
     Active Substance: DEXAMETHASONE
     Dosage: 3RD CYCLE WITH 40% REDUCTION IN DOSE
     Route: 065
     Dates: start: 20200328, end: 20200330
  4. DEXAMETHASONE [Suspect]
     Active Substance: DEXAMETHASONE
     Dosage: 4TH CYCLE 25 % DOSE REDUCED
     Route: 065
     Dates: start: 20200424, end: 20200426
  5. DEXAMETHASONE [Suspect]
     Active Substance: DEXAMETHASONE
     Dosage: 5TH CYCLE
     Route: 065
     Dates: start: 20200529, end: 20200531
  6. DEXAMETHASONE [Suspect]
     Active Substance: DEXAMETHASONE
     Dosage: 6TH CYCLE
     Route: 065
     Dates: start: 20200627, end: 20200629
  7. IFOSFAMIDE [Suspect]
     Active Substance: IFOSFAMIDE
     Indication: Angiocentric lymphoma
     Dosage: ON DAYS 2 TO 4  FOR 1 CYCLE OF A 28-DAY CYCLE
     Route: 065
     Dates: start: 20200120, end: 20200122
  8. IFOSFAMIDE [Suspect]
     Active Substance: IFOSFAMIDE
     Dosage: SECOND CYCLE
     Route: 065
     Dates: start: 20200217, end: 20200219
  9. IFOSFAMIDE [Suspect]
     Active Substance: IFOSFAMIDE
     Dosage: 3RD CYCLE 40% REDUCTION IN DOSE
     Route: 065
     Dates: start: 20200328, end: 20200330
  10. IFOSFAMIDE [Suspect]
     Active Substance: IFOSFAMIDE
     Dosage: 4TH CYCLE 25 % DOSE REDUCED
     Route: 065
     Dates: start: 20200424, end: 20200426
  11. IFOSFAMIDE [Suspect]
     Active Substance: IFOSFAMIDE
     Dosage: 5TH CYCLE
     Route: 065
     Dates: start: 20200529, end: 20200531
  12. IFOSFAMIDE [Suspect]
     Active Substance: IFOSFAMIDE
     Dosage: 6TH CYCLE
     Route: 065
     Dates: start: 20200627, end: 20200629
  13. PEGASPARGASE [Suspect]
     Active Substance: PEGASPARGASE
     Indication: Angiocentric lymphoma
     Dosage: 2000 U/M2 GIVEN ON DAY 8 OF A 28-DAY CYCLE
     Route: 065
     Dates: start: 20200126, end: 20200327
  14. PEGASPARGASE [Suspect]
     Active Substance: PEGASPARGASE
     Dosage: 2000 U/M2 GIVEN ON DAY 8 OF A 28-DAY CYCLE
     Route: 065
     Dates: start: 20200223, end: 20200223
  15. PEGASPARGASE [Suspect]
     Active Substance: PEGASPARGASE
     Dosage: 3RD CYCLE 40 % DOSE REDUCED
     Route: 065
     Dates: start: 20200403, end: 20200403
  16. PEGASPARGASE [Suspect]
     Active Substance: PEGASPARGASE
     Dosage: 4TH CYCLE 25 % DOSE REDUCED
     Route: 065
     Dates: start: 20200430, end: 20200430
  17. PEGASPARGASE [Suspect]
     Active Substance: PEGASPARGASE
     Dosage: 5TH CYCLE
     Route: 065
     Dates: start: 20200604, end: 20200604
  18. PEGASPARGASE [Suspect]
     Active Substance: PEGASPARGASE
     Dosage: 6TH CYCLE
     Route: 065
     Dates: start: 20200703, end: 20200703
  19. ETOPOSIDE [Suspect]
     Active Substance: ETOPOSIDE
     Indication: Angiocentric lymphoma
     Dosage: ON DAYS 2 TO 4  FOR 1 CYCLE OF A 28-DAY CYCLE
     Route: 065
     Dates: start: 20200120, end: 20200122
  20. ETOPOSIDE [Suspect]
     Active Substance: ETOPOSIDE
     Dosage: SECOND CYCLE
     Route: 065
     Dates: start: 20200217, end: 20200219
  21. ETOPOSIDE [Suspect]
     Active Substance: ETOPOSIDE
     Dosage: 3RD CYCLE 40 % DOSE REDUCED
     Route: 065
     Dates: start: 20200328, end: 20200330
  22. ETOPOSIDE [Suspect]
     Active Substance: ETOPOSIDE
     Dosage: 25 PERCENT DOSE REDUCTION 4TH CYCLE
     Route: 065
     Dates: start: 20200424, end: 20200426
  23. ETOPOSIDE [Suspect]
     Active Substance: ETOPOSIDE
     Dosage: 5TH CYCLE
     Route: 065
     Dates: start: 20200529, end: 20200531
  24. ETOPOSIDE [Suspect]
     Active Substance: ETOPOSIDE
     Dosage: 6TH CYCLE
     Route: 065
     Dates: start: 20200627, end: 20200629
  25. METHOTREXATE [Suspect]
     Active Substance: METHOTREXATE
     Indication: Angiocentric lymphoma
     Dosage: 2 G/ M2 GIVEN ON DAY 1 FOR 1 CYCLE
     Route: 065
     Dates: start: 20200119
  26. METHOTREXATE [Suspect]
     Active Substance: METHOTREXATE
     Indication: Prophylaxis
     Dosage: PROPHYLACTIC INTRAVITREAL 4 DOSES
     Route: 031
     Dates: start: 20200211, end: 20200221
  27. METHOTREXATE [Suspect]
     Active Substance: METHOTREXATE
     Dosage: SECOND CYCLE OF M-SMILE
     Route: 065
     Dates: start: 20200216, end: 20200216
  28. METHOTREXATE [Suspect]
     Active Substance: METHOTREXATE
     Dosage: DOSE HAD TO BE REDUCED 50 PERCENT (3RD CYCLE)
     Route: 065
     Dates: start: 20200327, end: 20200327
  29. METHOTREXATE [Suspect]
     Active Substance: METHOTREXATE
     Dosage: 4TH CYCLE WITH 25 PERCENT DOSE REDUCTION
     Route: 065
     Dates: start: 20200423, end: 20200423
  30. METHOTREXATE [Suspect]
     Active Substance: METHOTREXATE
     Dosage: 5TH CYCLE
     Route: 065
     Dates: start: 20200528, end: 20200528
  31. METHOTREXATE [Suspect]
     Active Substance: METHOTREXATE
     Dosage: 5TH CYCLE
     Route: 065
     Dates: start: 20200626, end: 20200626

REACTIONS (2)
  - Cytopenia [Unknown]
  - Renal injury [Unknown]

NARRATIVE: CASE EVENT DATE: 20200101
